FAERS Safety Report 17270351 (Version 1)
Quarter: 2020Q1

REPORT INFORMATION
  Report Type: Spontaneous
  Country: US (occurrence: US)
  Receive Date: 20191223
  Receipt Date: 20191223
  Transmission Date: 20200409
  Serious: No
  Sender: FDA-Public Use
  Company Number: None

PATIENT
  Age: 60 Year
  Sex: Female

DRUGS (2)
  1. ENBREL [Suspect]
     Active Substance: ETANERCEPT
     Indication: PRODUCT USED FOR UNKNOWN INDICATION
     Dosage: ?          OTHER DOSE:1 PEN;?
     Route: 058
     Dates: start: 20180116
  2. FORTEO [Concomitant]
     Active Substance: TERIPARATIDE
     Dosage: 20MCG EVERY 28 DAYS
     Route: 058
     Dates: start: 20191204

REACTIONS (1)
  - Eye operation [None]

NARRATIVE: CASE EVENT DATE: 20191223
